FAERS Safety Report 7973533-9 (Version None)
Quarter: 2011Q4

REPORT INFORMATION
  Report Type: 
  Country: None (occurrence: None)
  Receive Date: 20111122
  Receipt Date: 20110801
  Transmission Date: 20120403
  Serious: No
  Sender: FDA-Public Use
  Company Number: PHHY2011US49782

PATIENT
  Age: 55 Year
  Sex: Female

DRUGS (6)
  1. LIPITOR [Concomitant]
  2. VITAMIN D [Concomitant]
  3. GILENYA [Suspect]
     Indication: MULTIPLE SCLEROSIS
     Dosage: 0.5 MG, DAILY, ORAL
     Route: 048
     Dates: start: 20110218, end: 20110502
  4. NEURONTIN [Concomitant]
  5. LYRICA [Concomitant]
  6. BACLOFEN [Concomitant]

REACTIONS (4)
  - HEART RATE IRREGULAR [None]
  - DIZZINESS [None]
  - PALPITATIONS [None]
  - DYSPNOEA [None]
